FAERS Safety Report 15395488 (Version 1)
Quarter: 2018Q3

REPORT INFORMATION
  Report Type: Spontaneous
  Country: US (occurrence: US)
  Receive Date: 20180918
  Receipt Date: 20180918
  Transmission Date: 20181010
  Serious: Yes (Hospitalization)
  Sender: FDA-Public Use
  Company Number: US-JNJFOC-20180907288

PATIENT
  Age: 56 Year
  Sex: Female

DRUGS (1)
  1. INVOKANA [Suspect]
     Active Substance: CANAGLIFLOZIN
     Indication: TYPE 2 DIABETES MELLITUS
     Route: 048
     Dates: start: 20140122, end: 20171203

REACTIONS (4)
  - Extremity necrosis [Unknown]
  - Toe amputation [Unknown]
  - Peripheral ischaemia [Unknown]
  - Wound [Unknown]

NARRATIVE: CASE EVENT DATE: 201802
